FAERS Safety Report 10738011 (Version 2)
Quarter: 2015Q1

REPORT INFORMATION
  Report Type: Spontaneous
  Country: ES (occurrence: ES)
  Receive Date: 20150126
  Receipt Date: 20150217
  Transmission Date: 20150721
  Serious: Yes (Death)
  Sender: FDA-Public Use
  Company Number: ES-BRACCO-001084

PATIENT
  Age: 60 Year
  Sex: Male
  Weight: 54 kg

DRUGS (9)
  1. BISOPROLOL [Concomitant]
     Active Substance: BISOPROLOL
  2. FUROSEMIDE. [Concomitant]
     Active Substance: FUROSEMIDE
  3. ACETYLSALICYLIC ACID [Concomitant]
     Active Substance: ASPIRIN
  4. OMEPRAZOLE. [Concomitant]
     Active Substance: OMEPRAZOLE
  5. BISOPROLOL [Concomitant]
     Active Substance: BISOPROLOL
     Dates: start: 20150109
  6. ATORVASTATIN [Concomitant]
     Active Substance: ATORVASTATIN
  7. SONOVUE [Suspect]
     Active Substance: SULFUR HEXAFLUORIDE
     Indication: ECHOCARDIOGRAM
     Dosage: 1 ML
     Route: 040
     Dates: start: 20150109, end: 20150109
  8. TICAGRELOR [Concomitant]
     Active Substance: TICAGRELOR
  9. EPLERENONE. [Concomitant]
     Active Substance: EPLERENONE

REACTIONS (8)
  - Loss of consciousness [Fatal]
  - Bradycardia [Fatal]
  - Atrioventricular block [Fatal]
  - Hypotension [Fatal]
  - Cardio-respiratory arrest [None]
  - Pruritus [Fatal]
  - Cardiogenic shock [Fatal]
  - Myocardial ischaemia [None]

NARRATIVE: CASE EVENT DATE: 20150109
